FAERS Safety Report 19836160 (Version 1)
Quarter: 2021Q3

REPORT INFORMATION
  Report Type: Spontaneous
  Country: IT (occurrence: IT)
  Receive Date: 20210916
  Receipt Date: 20210916
  Transmission Date: 20211014
  Serious: Yes (Other)
  Sender: FDA-Public Use
  Company Number: IT-AUROBINDO-AUR-APL-2021-038526

PATIENT
  Age: 15 Year
  Sex: Female

DRUGS (10)
  1. TOPIRAMATE. [Suspect]
     Active Substance: TOPIRAMATE
     Indication: LIPOMATOSIS
     Dosage: UNK
     Route: 065
  2. TEMOZOLOMIDE. [Suspect]
     Active Substance: TEMOZOLOMIDE
     Indication: LIPOMATOSIS
     Dosage: UNK
     Route: 065
  3. VINCRISTINE [Suspect]
     Active Substance: VINCRISTINE
     Indication: LIPOMATOSIS
     Dosage: UNK
     Route: 065
  4. DELORAZEPAM [Suspect]
     Active Substance: DELORAZEPAM
     Indication: LIPOMATOSIS
     Dosage: UNK
     Route: 065
  5. CLONAZEPAM. [Suspect]
     Active Substance: CLONAZEPAM
     Indication: LIPOMATOSIS
     Dosage: UNK
     Route: 065
  6. PROCARBAZINE [Suspect]
     Active Substance: PROCARBAZINE
     Indication: LIPOMATOSIS
     Dosage: UNK
     Route: 065
  7. LOMUSTINE. [Suspect]
     Active Substance: LOMUSTINE
     Indication: LIPOMATOSIS
     Dosage: UNK
     Route: 065
  8. PHENOBARBITAL. [Suspect]
     Active Substance: PHENOBARBITAL
     Indication: LIPOMATOSIS
     Dosage: UNK
     Route: 065
  9. RUFINAMIDE [Suspect]
     Active Substance: RUFINAMIDE
     Indication: LIPOMATOSIS
     Dosage: UNK
     Route: 065
  10. VALPROATE [Suspect]
     Active Substance: VALPROIC ACID
     Indication: LIPOMATOSIS
     Dosage: UNK
     Route: 065

REACTIONS (1)
  - Drug ineffective for unapproved indication [Unknown]
